FAERS Safety Report 21356755 (Version 1)
Quarter: 2022Q3

REPORT INFORMATION
  Report Type: Spontaneous
  Country: US (occurrence: None)
  Receive Date: 20220920
  Receipt Date: 20220920
  Transmission Date: 20221027
  Serious: Yes (Death)
  Sender: FDA-Public Use
  Company Number: None

PATIENT
  Age: 39 Year
  Sex: Female

DRUGS (8)
  1. IPRATROPIUM BROMIDE [Suspect]
     Active Substance: IPRATROPIUM BROMIDE
     Indication: Cystic fibrosis
     Dosage: FREQUENCY : 3 TIMES A DAY;?
     Route: 055
     Dates: start: 20200207
  2. BUDESONIDE [Concomitant]
     Active Substance: BUDESONIDE
  3. DIPHENHYDRAMINE [Concomitant]
     Active Substance: DIPHENHYDRAMINE
  4. HEP LOCK 10 u/ml 5ml/5ml syr [Concomitant]
  5. LEVALBUTEROL [Concomitant]
     Active Substance: LEVALBUTEROL
  6. PREDNISONE [Concomitant]
     Active Substance: PREDNISONE
  7. PULMOZYME [Concomitant]
     Active Substance: DORNASE ALFA
  8. SODIUM CHLORIDE [Concomitant]
     Active Substance: SODIUM CHLORIDE

REACTIONS (1)
  - Death [None]

NARRATIVE: CASE EVENT DATE: 20220916
